FAERS Safety Report 21582444 (Version 3)
Quarter: 2022Q4

REPORT INFORMATION
  Report Type: Spontaneous
  Country: US (occurrence: US)
  Receive Date: 20221111
  Receipt Date: 20221229
  Transmission Date: 20230112
  Serious: No
  Sender: FDA-Public Use
  Company Number: US-PFIZER INC-PV202200100714

PATIENT
  Age: 75 Year
  Sex: Female
  Weight: 53.21 kg

DRUGS (1)
  1. IBRANCE [Suspect]
     Active Substance: PALBOCICLIB
     Indication: Breast cancer metastatic
     Dosage: 125MG TABLET, 1 TABLET ONCE DAILY FOR 21 DAYS, THEN 7 DAYS OFF
     Dates: start: 201610, end: 20221214

REACTIONS (1)
  - Neoplasm progression [Unknown]
